FAERS Safety Report 5485449-0 (Version None)
Quarter: 2007Q4

REPORT INFORMATION
  Report Type: 
  Country: None (occurrence: None)
  Receive Date: 20071010
  Receipt Date: 20071010
  Transmission Date: 20080405
  Serious: Yes (Death)
  Sender: FDA-Public Use
  Company Number: None

PATIENT
  Age: 28 Year
  Sex: Male
  Weight: 85.2762 kg

DRUGS (1)
  1. METHADONE HCL [Suspect]
     Dates: start: 20040101, end: 20050509

REACTIONS (2)
  - DRUG ABUSER [None]
  - SELF-MEDICATION [None]
